FAERS Safety Report 4667785-0 (Version None)
Quarter: 2005Q2

REPORT INFORMATION
  Report Type: 
  Country: None (occurrence: None)
  Receive Date: 20050520
  Receipt Date: 20050512
  Transmission Date: 20051028
  Serious: Yes (Hospitalization)
  Sender: FDA-Public Use
  Company Number: JP-GLAXOSMITHKLINE-B0381033A

PATIENT
  Age: 43 Year
  Sex: Female

DRUGS (3)
  1. PAXIL [Suspect]
     Indication: BIPOLAR I DISORDER
     Route: 048
     Dates: start: 20030620, end: 20030801
  2. MEILAX [Suspect]
     Indication: BIPOLAR I DISORDER
     Route: 048
     Dates: start: 20030620, end: 20030718
  3. LIMAS [Suspect]
     Indication: BIPOLAR I DISORDER
     Route: 048
     Dates: start: 20030627, end: 20030801

REACTIONS (1)
  - DRUG HYPERSENSITIVITY [None]
